FAERS Safety Report 8184601-3 (Version None)
Quarter: 2012Q1

REPORT INFORMATION
  Report Type: 
  Country: None (occurrence: None)
  Receive Date: 20120305
  Receipt Date: 20120229
  Transmission Date: 20120608
  Serious: Yes (Hospitalization)
  Sender: FDA-Public Use
  Company Number: US-GILEAD-2012-0051422

PATIENT
  Sex: Female

DRUGS (1)
  1. LETAIRIS [Suspect]
     Indication: PULMONARY HYPERTENSION
     Dosage: 5 MG, UNK
     Route: 048
     Dates: start: 20110909

REACTIONS (4)
  - SMALL INTESTINAL OBSTRUCTION [None]
  - SMALL INTESTINE OPERATION [None]
  - LAPAROTOMY [None]
  - ADHESIOLYSIS [None]
